FAERS Safety Report 25491668 (Version 1)
Quarter: 2025Q2

REPORT INFORMATION
  Report Type: Spontaneous
  Country: JP (occurrence: JP)
  Receive Date: 20250629
  Receipt Date: 20250629
  Transmission Date: 20250717
  Serious: Yes (Hospitalization)
  Sender: ASTELLAS
  Company Number: JP-ASTELLAS-2025-AER-034620

PATIENT
  Age: 6 Decade
  Sex: Male

DRUGS (15)
  1. XOSPATA [Suspect]
     Active Substance: GILTERITINIB
     Indication: Acute myeloid leukaemia
     Route: 065
  2. XOSPATA [Suspect]
     Active Substance: GILTERITINIB
     Route: 065
  3. XOSPATA [Suspect]
     Active Substance: GILTERITINIB
     Route: 065
  4. XOSPATA [Suspect]
     Active Substance: GILTERITINIB
     Route: 065
  5. TACROLIMUS [Suspect]
     Active Substance: TACROLIMUS
     Indication: Product used for unknown indication
     Route: 048
  6. VENETOCLAX [Concomitant]
     Active Substance: VENETOCLAX
     Indication: Product used for unknown indication
     Route: 065
  7. CYTARABINE\DAUNORUBICIN [Concomitant]
     Active Substance: CYTARABINE\DAUNORUBICIN
     Indication: Product used for unknown indication
     Route: 065
  8. IDARUBICIN [Concomitant]
     Active Substance: IDARUBICIN
     Indication: Product used for unknown indication
     Route: 065
  9. CYTARABINE [Concomitant]
     Active Substance: CYTARABINE
     Indication: Product used for unknown indication
     Route: 065
  10. QUIZARTINIB [Concomitant]
     Active Substance: QUIZARTINIB
     Indication: Product used for unknown indication
     Route: 065
  11. FLUDARABINE [Concomitant]
     Active Substance: FLUDARABINE PHOSPHATE
     Indication: Product used for unknown indication
     Route: 065
  12. BUSULFAN [Concomitant]
     Active Substance: BUSULFAN
     Indication: Product used for unknown indication
     Route: 065
  13. MELPHALAN [Concomitant]
     Active Substance: MELPHALAN
     Indication: Product used for unknown indication
     Route: 065
  14. AZACITIDINE [Concomitant]
     Active Substance: AZACITIDINE
     Indication: Product used for unknown indication
     Route: 065
  15. METHOTREXATE [Concomitant]
     Active Substance: METHOTREXATE
     Indication: Product used for unknown indication
     Route: 065

REACTIONS (2)
  - Pneumonia [Recovered/Resolved]
  - Intentional product misuse [Unknown]
